FAERS Safety Report 12764214 (Version 1)
Quarter: 2016Q3

REPORT INFORMATION
  Report Type: Report from Study
  Country: CR (occurrence: CR)
  Receive Date: 20160920
  Receipt Date: 20160920
  Transmission Date: 20161109
  Serious: Yes (Other)
  Sender: FDA-Public Use
  Company Number: PHHY2016CR128154

PATIENT
  Age: 69 Year
  Sex: Female

DRUGS (1)
  1. EXFORGE [Suspect]
     Active Substance: AMLODIPINE BESYLATE\VALSARTAN
     Indication: HYPERTENSION
     Dosage: 1 DF(AMLODIPINE 10 MG, VALSARTAN 320 MG), QHS
     Route: 065

REACTIONS (11)
  - Peripheral swelling [Unknown]
  - Arthralgia [Unknown]
  - Muscle spasms [Unknown]
  - Memory impairment [Unknown]
  - Cardiomegaly [Unknown]
  - Joint injury [Unknown]
  - Ligament sprain [Unknown]
  - Insomnia [Unknown]
  - Diabetes mellitus [Unknown]
  - Inflammation [Recovering/Resolving]
  - Weight decreased [Unknown]

NARRATIVE: CASE EVENT DATE: 2014
